FAERS Safety Report 16166124 (Version 25)
Quarter: 2023Q1

REPORT INFORMATION
  Report Type: Report from Study
  Country: GB (occurrence: GB)
  Receive Date: 20190406
  Receipt Date: 20230214
  Transmission Date: 20230417
  Serious: Yes (Life-Threatening, Hospitalization, Other)
  Sender: FDA-Public Use
  Company Number: None

PATIENT
  Age: 69 Year
  Sex: Female

DRUGS (54)
  1. DOCETAXEL [Suspect]
     Active Substance: DOCETAXEL
     Indication: Breast cancer metastatic
     Dosage: 124 MG, EVERY 3 WEEK (CUMULATIVE DOSE: 159.42857 MG)
     Route: 042
     Dates: start: 20151106, end: 20151106
  2. PACLITAXEL [Suspect]
     Active Substance: PACLITAXEL
     Indication: Breast cancer metastatic
     Dosage: 125 MG, Q4W
     Route: 042
     Dates: start: 20160204, end: 20160218
  3. HERCEPTIN [Suspect]
     Active Substance: TRASTUZUMAB
     Indication: Breast cancer metastatic
     Dosage: LOADING DOSE,  16.6 MG, MAINTENANCE DOSE, INTRAVENOUS DRIP
     Dates: start: 20151105, end: 20151105
  4. PERTUZUMAB [Suspect]
     Active Substance: PERTUZUMAB
     Indication: Breast cancer metastatic
     Dosage: MAINTENANCE DOSE, LOADING DOSE, INFUSION, SOLUTION
     Route: 042
     Dates: start: 20151203
  5. TRASTUZUMAB [Suspect]
     Active Substance: TRASTUZUMAB
     Indication: Breast cancer metastatic
     Dosage: INFUSION, SOLUTION, DATE OF LAST ADMINISTERED DOSE: 27-APR-2019.
     Route: 042
     Dates: start: 20180518, end: 20190427
  6. CETIRIZINE [Concomitant]
     Active Substance: CETIRIZINE HYDROCHLORIDE
     Indication: Antiviral prophylaxis
     Dosage: 1 TABLET AT NIGHT FOR 3 DAYS
     Route: 048
     Dates: start: 20151203
  7. CHLORHEXIDINE GLUCONATE [Concomitant]
     Active Substance: CHLORHEXIDINE GLUCONATE
     Indication: Prophylaxis
     Dosage: MOUTHWASH
     Route: 048
     Dates: start: 20151105
  8. DEXAMETHASONE [Concomitant]
     Active Substance: DEXAMETHASONE
     Indication: Prophylaxis
     Route: 048
     Dates: start: 20151105
  9. LORATADINE [Concomitant]
     Active Substance: LORATADINE
     Route: 048
     Dates: start: 20151119, end: 20151217
  10. METOCLOPRAMIDE [Concomitant]
     Active Substance: METOCLOPRAMIDE
     Indication: Prophylaxis of nausea and vomiting
     Route: 048
     Dates: start: 20151203
  11. TRIMETHOPRIM [Concomitant]
     Active Substance: TRIMETHOPRIM
     Indication: Urinary tract infection
     Dosage: 200 MG, EVERY 1 DAY
     Route: 048
     Dates: start: 20151210
  12. TRAMADOL HYDROCHLORIDE [Concomitant]
     Active Substance: TRAMADOL HYDROCHLORIDE
     Indication: Prophylaxis
     Route: 048
     Dates: start: 20151105
  13. RANITIDINE [Concomitant]
     Active Substance: RANITIDINE
     Indication: Prophylaxis
     Dosage: 1 TABLET TWICE A DAY FOR 3 DAYS
     Route: 048
     Dates: start: 20151203
  14. LOPERAMIDE [Concomitant]
     Active Substance: LOPERAMIDE
     Indication: Prophylaxis against diarrhoea
     Dosage: 4 TABLET TWICE A DAY FOR 3 DAYS
     Route: 048
     Dates: start: 20151203
  15. ATORVASTATIN [Concomitant]
     Active Substance: ATORVASTATIN
     Dosage: 40 MG, QD
     Route: 048
     Dates: start: 20170701
  16. CLOPIDOGREL [Concomitant]
     Active Substance: CLOPIDOGREL BISULFATE
     Route: 048
     Dates: start: 20170701
  17. RAMIPRIL [Concomitant]
     Active Substance: RAMIPRIL
     Dosage: 1.25 MG, EVERY 1 DAY
     Route: 048
     Dates: start: 20170523
  18. LANSOPRAZOLE [Concomitant]
     Active Substance: LANSOPRAZOLE
     Dosage: 30 MG, QD
     Route: 048
     Dates: start: 20170312
  19. ASPIRIN [Concomitant]
     Active Substance: ASPIRIN
     Dosage: 75 MG, QD
     Route: 048
     Dates: start: 20170523, end: 20170701
  20. ROSUVASTATIN [Concomitant]
     Active Substance: ROSUVASTATIN
     Route: 048
     Dates: start: 201806, end: 201911
  21. EZETIMIBE [Concomitant]
     Active Substance: EZETIMIBE
     Route: 048
     Dates: start: 2019
  22. HERCEPTIN [Suspect]
     Active Substance: TRASTUZUMAB
     Indication: Product used for unknown indication
     Dosage: MAINTENANCE DOSE, DATE OF LAST ADMINISTERED DOSE: 27-APR-2018, 300 UNK, TIW
     Route: 042
     Dates: start: 20151203
  23. TRASTUZUMAB [Suspect]
     Active Substance: TRASTUZUMAB
     Indication: Breast cancer metastatic
     Dosage: MAINTENANCE DOSE
     Route: 042
     Dates: start: 20151203, end: 20180427
  24. TRASTUZUMAB [Suspect]
     Active Substance: TRASTUZUMAB
     Indication: Breast cancer metastatic
     Dosage: LOADING DOSE
     Route: 042
     Dates: start: 20151105, end: 20151105
  25. ASPIRIN [Concomitant]
     Active Substance: ASPIRIN
     Dosage: 75 MG EVERY 1 DAY (CUMULATIVE DOSE TO FIRST REACTION: 40421.875 MG, 245?DOSE FORM)
     Route: 048
     Dates: start: 20170523
  26. ASPIRIN [Concomitant]
     Active Substance: ASPIRIN
  27. CHLORHEXIDINE GLUCONATE [Concomitant]
     Active Substance: CHLORHEXIDINE GLUCONATE
     Indication: Prophylaxis
     Dosage: EVERY 0.25 DAY (MOUTHWASH)
     Dates: start: 20151105
  28. CHLORHEXIDINE GLUCONATE [Concomitant]
     Active Substance: CHLORHEXIDINE GLUCONATE
     Indication: Prophylaxis
     Dosage: 4 EVERY 1 DAY (MOUTHWASH)
     Route: 048
     Dates: start: 20151105
  29. RAMIPRIL [Concomitant]
     Active Substance: RAMIPRIL
     Dosage: 2.5 MG, EVERY 1 DAY (CUM DOSE TO FIRST REACTION 1347.3959 MG)
     Route: 048
     Dates: start: 20170523
  30. TRIMETHOPRIM [Concomitant]
     Active Substance: TRIMETHOPRIM
     Indication: Urinary tract infection
     Dosage: 400 MG EVERY 1 DAY
     Route: 048
     Dates: start: 20151210
  31. PACLITAXEL [Suspect]
     Active Substance: PACLITAXEL
     Indication: Product used for unknown indication
     Route: 042
     Dates: start: 20160204, end: 20160218
  32. PACLITAXEL [Suspect]
     Active Substance: PACLITAXEL
     Indication: Breast cancer metastatic
     Dosage: 34.75 MG CD, 884 MG, 4.92857142 MG
     Route: 042
     Dates: start: 20151210
  33. PACLITAXEL [Suspect]
     Active Substance: PACLITAXEL
     Indication: Breast cancer metastatic
     Dosage: 138 MG, EVERY 4 WEEKS (CUMULATIVE DOSE: 9.857142 MG)
     Route: 042
     Dates: start: 20151203, end: 20160203
  34. PACLITAXEL [Suspect]
     Active Substance: PACLITAXEL
     Indication: Breast cancer metastatic
     Dosage: 68 MG, WEEKLY
     Route: 042
     Dates: start: 20160303, end: 20160310
  35. PACLITAXEL [Suspect]
     Active Substance: PACLITAXEL
     Indication: Breast cancer metastatic
     Dosage: 134 MG, EVERY 4 WEEKS (CUMULATIVE DOSE: 229.5 MG)
     Route: 042
     Dates: start: 20151210
  36. PACLITAXEL [Suspect]
     Active Substance: PACLITAXEL
     Indication: Product used for unknown indication
     Dosage: 120 MG, EVERY 4 WEEKS (34.75 MG CD, 884 MG, 4.92857142 MG: CUMULATIVE?DOSE: 229.5 MG)
     Route: 042
     Dates: start: 20160204
  37. TRASTUZUMAB [Suspect]
     Active Substance: TRASTUZUMAB
     Indication: Product used for unknown indication
     Dosage: INFUSION, SOLUTION, DATE OF LAST ADMINISTERED DOSE: 27-APR-2019.
     Route: 042
     Dates: start: 20151203, end: 20180327
  38. TRASTUZUMAB [Suspect]
     Active Substance: TRASTUZUMAB
     Indication: Breast cancer metastatic
     Route: 042
     Dates: start: 20180518, end: 20190327
  39. PACLITAXEL [Suspect]
     Active Substance: PACLITAXEL
     Indication: Breast cancer metastatic
     Dosage: 139, Q4W, INTRAVENOUS DRIP
     Dates: start: 20151210
  40. PACLITAXEL [Suspect]
     Active Substance: PACLITAXEL
     Indication: Breast cancer metastatic
     Dosage: 102 MG, WEEKLY
     Route: 042
     Dates: start: 20160303, end: 20160310
  41. PACLITAXEL [Suspect]
     Active Substance: PACLITAXEL
     Indication: Breast cancer metastatic
     Dosage: 68 MG, WEEKLY
     Route: 042
     Dates: start: 20160310
  42. ASPIRIN [Concomitant]
     Active Substance: ASPIRIN
     Indication: Product used for unknown indication
     Dosage: 75 MG, QD
     Route: 048
     Dates: start: 20170701
  43. LOPERAMIDE [Concomitant]
     Active Substance: LOPERAMIDE
     Indication: Prophylaxis
     Route: 048
     Dates: start: 20151203
  44. METOCLOPRAMIDE [Concomitant]
     Active Substance: METOCLOPRAMIDE
     Indication: Prophylaxis
     Route: 048
     Dates: start: 20151203
  45. RANITIDINE [Concomitant]
     Active Substance: RANITIDINE
     Indication: Prophylaxis
     Dosage: 150 MG, UNK 1 TABLET TWICE A DAY FOR 3 DAYS
     Dates: start: 20151203
  46. PERTUZUMAB [Suspect]
     Active Substance: PERTUZUMAB
     Indication: Breast cancer metastatic
     Route: 042
     Dates: start: 20151105
  47. HERCEPTIN [Suspect]
     Active Substance: TRASTUZUMAB
     Indication: Breast cancer metastatic
     Dosage: 336 MG, TIW (DATE AND TIME OF LAST ADMINISTRATION 27 APR 2019)
     Route: 042
     Dates: start: 20180518
  48. PACLITAXEL [Suspect]
     Active Substance: PACLITAXEL
     Indication: Product used for unknown indication
     Dosage: 138 MG, Q4W (CUMULATIVE DOSE: 229.5MG)
     Route: 042
     Dates: start: 20151210
  49. ATORVASTATIN [Concomitant]
     Active Substance: ATORVASTATIN
     Dosage: 350 MG, Q3W (MAINTENANCE CUM DOSE: 33.333332 MG)
     Route: 048
     Dates: start: 20170701
  50. LOPERAMIDE [Concomitant]
     Active Substance: LOPERAMIDE
     Indication: Prophylaxis
     Dosage: 4 DF, BID FOR 3 DAYS
     Route: 048
     Dates: start: 20151203
  51. PACLITAXEL [Suspect]
     Active Substance: PACLITAXEL
     Indication: Breast cancer metastatic
     Dosage: 120 MG, Q4W MONTHLY, EVERY 4 WEEKS (CUMULATIVE DOSE: 44.67857 MG)
     Dates: start: 20151210
  52. PACLITAXEL [Suspect]
     Active Substance: PACLITAXEL
     Indication: Breast cancer metastatic
     Dosage: 120 MG, Q4W (MONTHLY, EVERY 4 WEEKS (34.75 MG CD,)884 MG, 4.92857142?MG, CUMULATIVE
     Dates: start: 20160204, end: 20160218
  53. PACLITAXEL [Suspect]
     Active Substance: PACLITAXEL
     Indication: Breast cancer metastatic
     Dosage: 138 MG, Q4W (CUMULATIVE DOSE: 229.5MG)
     Dates: start: 20151203, end: 20161203
  54. PERTUZUMAB [Suspect]
     Active Substance: PERTUZUMAB
     Indication: Breast cancer metastatic
     Dosage: LOADING DOSE, INFUSION, SOLUTION
     Route: 042
     Dates: start: 20151105, end: 20151105

REACTIONS (22)
  - Anaphylactic reaction [Recovered/Resolved]
  - Bacterial test positive [Recovered/Resolved]
  - Tendonitis [Not Recovered/Not Resolved]
  - Urosepsis [Recovered/Resolved]
  - Defaecation urgency [Recovered/Resolved]
  - Mucosal inflammation [Recovered/Resolved]
  - Hypertension [Recovered/Resolved]
  - Neuropathy peripheral [Recovered/Resolved]
  - Erythema [Recovered/Resolved]
  - Tremor [Recovered/Resolved]
  - Fatigue [Recovered/Resolved]
  - Urinary tract infection [Recovered/Resolved]
  - Chest discomfort [Recovered/Resolved]
  - Cystitis noninfective [Recovered/Resolved]
  - Malaise [Recovered/Resolved]
  - Dyspnoea [Recovered/Resolved]
  - Rash [Recovered/Resolved]
  - Dysuria [Recovered/Resolved]
  - Palmar erythema [Recovered/Resolved]
  - Diarrhoea [Recovered/Resolved]
  - Escherichia test positive [Not Recovered/Not Resolved]
  - Hypersensitivity [Recovered/Resolved]

NARRATIVE: CASE EVENT DATE: 20151201
